FAERS Safety Report 19902867 (Version 1)
Quarter: 2021Q4

REPORT INFORMATION
  Report Type: Spontaneous
  Country: US (occurrence: US)
  Receive Date: 20211001
  Receipt Date: 20211001
  Transmission Date: 20220303
  Serious: No
  Sender: FDA-Public Use
  Company Number: US-ELI_LILLY_AND_COMPANY-US202109000573

PATIENT
  Age: 69 Year
  Sex: Female

DRUGS (5)
  1. BASAGLAR [Suspect]
     Active Substance: INSULIN GLARGINE
     Indication: Diabetes mellitus
     Dosage: 27 U, DAILY
     Route: 058
  2. BASAGLAR [Suspect]
     Active Substance: INSULIN GLARGINE
     Indication: Diabetes mellitus
     Dosage: 27 U, DAILY
     Route: 058
  3. BASAGLAR [Suspect]
     Active Substance: INSULIN GLARGINE
     Dosage: 28 U, DAILY
     Route: 058
  4. BASAGLAR [Suspect]
     Active Substance: INSULIN GLARGINE
     Dosage: 28 U, DAILY
     Route: 058
  5. METFORMIN [Concomitant]
     Active Substance: METFORMIN HYDROCHLORIDE
     Indication: Diabetes mellitus
     Dosage: 2000 MG, UNKNOWN
     Route: 065
     Dates: start: 1999

REACTIONS (4)
  - Glycosylated haemoglobin increased [Unknown]
  - Blood glucose increased [Unknown]
  - Blood glucose fluctuation [Not Recovered/Not Resolved]
  - Incorrect dose administered by device [Unknown]

NARRATIVE: CASE EVENT DATE: 20210901
